FAERS Safety Report 11118530 (Version 2)
Quarter: 2015Q3

REPORT INFORMATION
  Report Type: Report from Study
  Country: US (occurrence: US)
  Receive Date: 20150518
  Receipt Date: 20150817
  Transmission Date: 20151125
  Serious: Yes (Other)
  Sender: FDA-Public Use
  Company Number: US-BIOGENIDEC-2015BI063345

PATIENT
  Age: 66 Year
  Sex: Female

DRUGS (1)
  1. PLEGRIDY [Suspect]
     Active Substance: PEGINTERFERON BETA-1A
     Indication: MULTIPLE SCLEROSIS
     Dates: start: 20150112, end: 20150504

REACTIONS (5)
  - Influenza like illness [Unknown]
  - Febrile convulsion [Unknown]
  - Fatigue [Unknown]
  - General symptom [Unknown]
  - Insomnia [Unknown]

NARRATIVE: CASE EVENT DATE: 2015
